FAERS Safety Report 24004418 (Version 1)
Quarter: 2024Q2

REPORT INFORMATION
  Report Type: Spontaneous
  Country: ES (occurrence: ES)
  Receive Date: 20240624
  Receipt Date: 20240624
  Transmission Date: 20240716
  Serious: Yes (Other)
  Sender: FDA-Public Use
  Company Number: ES-AEMPS-1534242

PATIENT
  Age: 48 Year
  Sex: Male

DRUGS (2)
  1. IBUPROFEN [Suspect]
     Active Substance: IBUPROFEN
     Indication: Back pain
     Dosage: UNK UNK, ONCE A DAY
     Route: 065
     Dates: start: 20240523, end: 20240523
  2. VALIUM [Suspect]
     Active Substance: DIAZEPAM
     Indication: Back pain
     Dosage: UNK UNK, ONCE A DAY
     Route: 065
     Dates: start: 20240522, end: 20240522

REACTIONS (1)
  - Hypoaesthesia [Recovered/Resolved]

NARRATIVE: CASE EVENT DATE: 20240523
